FAERS Safety Report 16539555 (Version 1)
Quarter: 2019Q3

REPORT INFORMATION
  Report Type: Spontaneous
  Country: US (occurrence: US)
  Receive Date: 20190524
  Receipt Date: 20190524
  Transmission Date: 20191004
  Serious: Yes (Disabling, Other)
  Sender: FDA-Public Use
  Company Number: None

PATIENT
  Age: 29 Year
  Sex: Female
  Weight: 52.16 kg

DRUGS (2)
  1. IBUPROFEN. [Concomitant]
     Active Substance: IBUPROFEN
  2. PYRIDOSTIGMINE 60MG TAB [Suspect]
     Active Substance: PYRIDOSTIGMINE
     Indication: MYASTHENIA GRAVIS
     Dosage: ?          QUANTITY:60 MG MILLIGRAM(S);?
     Route: 048
     Dates: start: 20190308, end: 20190523

REACTIONS (3)
  - Myasthenia gravis [None]
  - Weight decreased [None]
  - Drug ineffective [None]

NARRATIVE: CASE EVENT DATE: 20190523
